FAERS Safety Report 17543526 (Version 2)
Quarter: 2020Q1

REPORT INFORMATION
  Report Type: Spontaneous
  Country: NZ (occurrence: NZ)
  Receive Date: 20200316
  Receipt Date: 20200320
  Transmission Date: 20200409
  Serious: Yes (Death, Other)
  Sender: FDA-Public Use
  Company Number: NZ-009507513-2003NZL005491

PATIENT
  Age: 69 Year
  Sex: Male

DRUGS (3)
  1. KEYTRUDA [Suspect]
     Active Substance: PEMBROLIZUMAB
     Indication: BLADDER TRANSITIONAL CELL CARCINOMA
     Dosage: 4 CYCLES
     Dates: start: 201708
  2. KEYTRUDA [Suspect]
     Active Substance: PEMBROLIZUMAB
     Dosage: UNK
     Dates: start: 201804
  3. CARBOPLATIN (+) GEMCITABINE [Suspect]
     Active Substance: CARBOPLATIN\GEMCITABINE
     Indication: BLADDER TRANSITIONAL CELL CARCINOMA
     Dosage: 3 CYCLES
     Dates: start: 201807

REACTIONS (2)
  - Malignant neoplasm progression [Fatal]
  - Therapy non-responder [Unknown]

NARRATIVE: CASE EVENT DATE: 201907
